FAERS Safety Report 9662037 (Version 2)
Quarter: 2013Q4

REPORT INFORMATION
  Report Type: Not Available
  Country: US (occurrence: US)
  Receive Date: 20131031
  Receipt Date: 20131031
  Transmission Date: 20140711
  Serious: No
  Sender: FDA-Public Use
  Company Number: US-PURDUE-USA-2011-0064361

PATIENT
  Age: 43 Year
  Sex: Male
  Weight: 89.34 kg

DRUGS (5)
  1. OXYCONTIN (NDA 22-272) [Suspect]
     Indication: PAIN
     Dosage: 60 MG, BID
     Dates: start: 201010
  2. HYDROCODONE [Concomitant]
     Indication: BREAKTHROUGH PAIN
  3. PERCOCET                           /00446701/ [Concomitant]
     Indication: BREAKTHROUGH PAIN
     Dosage: 10-325, FOUR TIMES DAILY
  4. SOMA [Concomitant]
     Indication: HYPOTONIA
     Dosage: 1 DF, DAILY
  5. AMBIEN [Concomitant]
     Indication: SLEEP DISORDER
     Dosage: 1 DF, HS

REACTIONS (7)
  - Gastrooesophageal reflux disease [Recovering/Resolving]
  - Abdominal pain upper [Recovering/Resolving]
  - Dyspepsia [Recovering/Resolving]
  - Drug effect delayed [Not Recovered/Not Resolved]
  - Inadequate analgesia [Not Recovered/Not Resolved]
  - Drug effect decreased [Not Recovered/Not Resolved]
  - Constipation [Not Recovered/Not Resolved]
